FAERS Safety Report 9027824 (Version 1)
Quarter: 2013Q1

REPORT INFORMATION
  Report Type: Spontaneous
  Country: US (occurrence: None)
  Receive Date: 20130115
  Receipt Date: 20130115
  Transmission Date: 20140127
  Serious: Yes (Life-Threatening, Hospitalization)
  Sender: FDA-Public Use
  Company Number: None

PATIENT
  Age: 82 Year
  Sex: Male
  Weight: 73.2 kg

DRUGS (7)
  1. WARFARIN [Suspect]
     Indication: ATRIAL FIBRILLATION
     Route: 048
     Dates: start: 20121113, end: 20121125
  2. VITAMIN D [Concomitant]
  3. SETRALINE [Concomitant]
  4. IBUPROFEN [Concomitant]
  5. OMEPRAZOLE [Concomitant]
  6. ATENOLOL-CHLORTHALIDONE [Concomitant]
  7. ASPIRIN [Concomitant]

REACTIONS (1)
  - Mallory-Weiss syndrome [None]
